FAERS Safety Report 8820020 (Version 2)
Quarter: 2012Q4

REPORT INFORMATION
  Report Type: Report from Study
  Country: JP (occurrence: JP)
  Receive Date: 20121001
  Receipt Date: 20121010
  Transmission Date: 20130627
  Serious: Yes (Hospitalization, Other)
  Sender: FDA-Public Use
  Company Number: JP-VERTEX PHARMACEUTICAL INC.-AE-2012-009776

PATIENT
  Age: 46 Year
  Sex: Female

DRUGS (14)
  1. VX-950 [Suspect]
     Indication: HEPATITIS C
     Dosage: 2250 mg, qd
     Route: 048
     Dates: start: 20120514, end: 20120702
  2. PEGINTERFERON ALFA-2B [Suspect]
     Indication: HEPATITIS C
     Dosage: 1.5 UNK, UNK
     Route: 058
     Dates: start: 20120514, end: 20120702
  3. RIBAVIRIN [Suspect]
     Indication: HEPATITIS C
     Dosage: 800 mg, qd
     Route: 048
     Dates: start: 20120514
  4. RIBAVIRIN [Suspect]
     Dosage: 600 mg, qd
     Route: 048
  5. RIBAVIRIN [Suspect]
     Dosage: 400 mg, qd
     Route: 048
     Dates: end: 20120709
  6. RIBAVIRIN [Suspect]
     Dosage: 800 mg, qd
     Route: 048
     Dates: start: 20120514, end: 20120702
  7. ALLOPURINOL [Suspect]
     Indication: HEPATITIS C
     Dosage: 100 mg, qd
     Route: 048
     Dates: start: 20120514, end: 20120709
  8. ALLOPURINOL [Suspect]
     Dosage: 100 mg, qd
     Route: 048
     Dates: start: 20120611
  9. LANSOPRAZOLE [Suspect]
     Dosage: 15 mg, qd
     Route: 048
     Dates: start: 20120514, end: 20120709
  10. TAKEPRON [Concomitant]
     Dosage: 1 DF, qd
     Route: 048
     Dates: start: 20120514
  11. ALLEGRA [Concomitant]
     Dosage: 60 mg, qd
     Route: 048
     Dates: start: 20120518
  12. ALLEGRA [Concomitant]
     Dosage: 120 mg, qd
     Route: 048
     Dates: start: 20120521
  13. MYSER                              /01249201/ [Concomitant]
     Dosage: 5 g, qd
     Route: 061
     Dates: start: 20120525
  14. ZYLORIC [Concomitant]
     Dosage: 1 DF, qd
     Route: 048
     Dates: start: 20120611

REACTIONS (1)
  - Pancreatitis acute [Recovered/Resolved]
